FAERS Safety Report 6129952-9 (Version None)
Quarter: 2009Q1

REPORT INFORMATION
  Report Type: 
  Country: None (occurrence: None)
  Receive Date: 20090323
  Receipt Date: 20090323
  Transmission Date: 20090719
  Serious: Yes (Other)
  Sender: FDA-Public Use
  Company Number: None

PATIENT
  Age: 60 Year
  Sex: Female
  Weight: 77.1115 kg

DRUGS (1)
  1. PLAVIX [Suspect]
     Indication: CORONARY ARTERIAL STENT INSERTION
     Dosage: ONCE DAILY
     Dates: start: 20070703, end: 20080707

REACTIONS (2)
  - CERVIX HAEMORRHAGE UTERINE [None]
  - GASTROINTESTINAL DISORDER [None]
